FAERS Safety Report 7074130-2 (Version None)
Quarter: 2010Q4

REPORT INFORMATION
  Report Type: 
  Country: None (occurrence: None)
  Receive Date: 20101020
  Receipt Date: 20101005
  Transmission Date: 20110411
  Serious: Yes (Hospitalization)
  Sender: FDA-Public Use
  Company Number: AUR-APL-2010-02375

PATIENT
  Age: 70 Year
  Sex: Female
  Weight: 98.1 kg

DRUGS (13)
  1. METFORMIN HCL [Suspect]
     Dosage: 500MG-DAILY-ORAL
     Route: 048
     Dates: start: 20071116, end: 20100723
  2. METFORMIN HCL [Suspect]
     Dosage: 500MG-DAILY-ORAL
     Route: 048
     Dates: start: 20100807
  3. CELECOXIB; IBUPROFEN; NAPROXEN; PLACEBO [Suspect]
     Indication: OSTEOARTHRITIS
     Dosage: TID-ORAL
     Route: 048
     Dates: start: 20070621, end: 20091101
  4. PLAVIX [Suspect]
     Indication: CORONARY ARTERY DISEASE
     Dosage: 75MG-DAILY-ORAL
     Route: 048
     Dates: start: 20090109
  5. VALSARTAN [Suspect]
     Indication: HYPERTENSION
     Dosage: 160MG-DAILY-ORAL
     Route: 048
     Dates: start: 20080112, end: 20100725
  6. NEXIUM [Concomitant]
  7. CRESTOR [Concomitant]
  8. ACETYLSALICYLIC ACID SRT [Concomitant]
  9. VITAMIN B6 [Concomitant]
  10. ALBUTEROL [Concomitant]
  11. ADVAIR DISKUS 100/50 [Concomitant]
  12. VICODIN [Concomitant]
  13. MAGNESIUM [Concomitant]

REACTIONS (4)
  - NEPHROLITHIASIS [None]
  - PNEUMONIA [None]
  - RENAL FAILURE ACUTE [None]
  - THROMBOCYTOPENIA [None]
